FAERS Safety Report 4331782-5 (Version None)
Quarter: 2004Q2

REPORT INFORMATION
  Report Type: 
  Country: None (occurrence: None)
  Receive Date: 20040405
  Receipt Date: 20030730
  Transmission Date: 20050107
  Serious: No
  Sender: FDA-Public Use
  Company Number: US-GLAXOSMITHKLINE-A0419702A

PATIENT
  Age: 65 Year
  Sex: Female

DRUGS (7)
  1. FLOVENT [Suspect]
     Indication: ASTHMA
     Dosage: 2PUFF TWICE PER DAY
     Route: 055
     Dates: start: 19980101
  2. VITAMINES [Concomitant]
  3. CALCIUM SUPPLEMENT [Concomitant]
  4. GARLIC [Concomitant]
     Route: 048
  5. ALBUTEROL [Concomitant]
  6. ALBUTEROL [Concomitant]
     Route: 055
  7. PREDNISONE [Concomitant]

REACTIONS (3)
  - DYSPNOEA EXERTIONAL [None]
  - FEELING ABNORMAL [None]
  - PHARMACEUTICAL PRODUCT COMPLAINT [None]
